FAERS Safety Report 13108879 (Version 1)
Quarter: 2017Q1

REPORT INFORMATION
  Report Type: Spontaneous
  Country: US (occurrence: US)
  Receive Date: 20170112
  Receipt Date: 20170112
  Transmission Date: 20170428
  Serious: Yes (Hospitalization, Other)
  Sender: FDA-Public Use
  Company Number: US-GLAXOSMITHKLINE-US2017003117

PATIENT
  Age: 54 Year
  Sex: Male

DRUGS (1)
  1. ARNUITY ELLIPTA [Suspect]
     Active Substance: FLUTICASONE FUROATE
     Indication: PRODUCT USED FOR UNKNOWN INDICATION
     Route: 055

REACTIONS (5)
  - Femur fracture [Unknown]
  - Neoplasm malignant [Unknown]
  - Skin lesion [Unknown]
  - Bone marrow transplant [Unknown]
  - Cancer surgery [Unknown]

NARRATIVE: CASE EVENT DATE: 201405
